FAERS Safety Report 15757502 (Version 1)
Quarter: 2018Q4

REPORT INFORMATION
  Report Type: Spontaneous
  Country: US (occurrence: US)
  Receive Date: 20181224
  Receipt Date: 20181224
  Transmission Date: 20190205
  Serious: No
  Sender: FDA-Public Use
  Company Number: US-AMGEN-USASP2018183049

PATIENT
  Age: 58 Year
  Sex: Female

DRUGS (4)
  1. MIRTAZAPINE. [Concomitant]
     Active Substance: MIRTAZAPINE
     Dosage: 15 MG, UNK
  2. PAROXETINE. [Concomitant]
     Active Substance: PAROXETINE
     Dosage: 30 MG, UNK
  3. BUPROPION. [Concomitant]
     Active Substance: BUPROPION
     Dosage: 100 MG, UNK
  4. ENBREL [Suspect]
     Active Substance: ETANERCEPT
     Indication: PSORIATIC ARTHROPATHY
     Dosage: WK
     Route: 058

REACTIONS (1)
  - Product dose omission [Unknown]

NARRATIVE: CASE EVENT DATE: 201811
